FAERS Safety Report 4973606-9 (Version None)
Quarter: 2006Q1

REPORT INFORMATION
  Report Type: 
  Country: None (occurrence: None)
  Receive Date: 20060215
  Receipt Date: 20051215
  Transmission Date: 20060701
  Serious: No
  Sender: FDA-Public Use
  Company Number: US200512002804

PATIENT
  Age: 45 Year
  Sex: Male

DRUGS (3)
  1. CIALIS [Suspect]
     Indication: ERECTILE DYSFUNCTION
     Dosage: SEE IMAGE
     Route: 065
     Dates: start: 20050601
  2. CIALIS [Suspect]
     Indication: ERECTILE DYSFUNCTION
     Dosage: SEE IMAGE
     Route: 065
     Dates: start: 20050601
  3. TRAMADOL HCL [Suspect]
     Indication: GOUT
     Route: 065

REACTIONS (2)
  - HEADACHE [None]
  - NAUSEA [None]
